FAERS Safety Report 7316457-2 (Version None)
Quarter: 2011Q1

REPORT INFORMATION
  Report Type: 
  Country: None (occurrence: None)
  Receive Date: 20110225
  Receipt Date: 20110216
  Transmission Date: 20110831
  Serious: Yes (Hospitalization)
  Sender: FDA-Public Use
  Company Number: US-ASTRAZENECA-2011SE08974

PATIENT
  Age: 63 Year
  Sex: Male

DRUGS (7)
  1. NEURONTIN [Concomitant]
     Indication: FIBROMYALGIA
  2. FLUOXETINE [Concomitant]
  3. VITAMIN D [Concomitant]
  4. SEROQUEL [Suspect]
     Route: 048
  5. PRIMIDONE [Concomitant]
     Indication: TREMOR
     Dosage: DAILY DOSE 50.
  6. WARFARIN SODIUM [Concomitant]
  7. SEROQUEL [Suspect]
     Indication: POST-TRAUMATIC STRESS DISORDER
     Route: 048

REACTIONS (10)
  - SEPSIS SYNDROME [None]
  - INTESTINAL PERFORATION [None]
  - DIZZINESS [None]
  - PNEUMONIA [None]
  - PULMONARY EMBOLISM [None]
  - GASTRIC OPERATION [None]
  - HYPERSOMNIA [None]
  - BALANCE DISORDER [None]
  - ACUTE RESPIRATORY DISTRESS SYNDROME [None]
  - CEREBROVASCULAR ACCIDENT [None]
